FAERS Safety Report 24079553 (Version 1)
Quarter: 2024Q3

REPORT INFORMATION
  Report Type: Spontaneous
  Country: LB (occurrence: LB)
  Receive Date: 20240711
  Receipt Date: 20240711
  Transmission Date: 20241016
  Serious: Yes (Other)
  Sender: PFIZER
  Company Number: LB-SEATTLE GENETICS-2019SGN03150

PATIENT
  Age: 22 Year
  Sex: Male

DRUGS (1)
  1. ADCETRIS [Suspect]
     Active Substance: BRENTUXIMAB VEDOTIN
     Indication: Hodgkin^s disease
     Route: 065

REACTIONS (2)
  - Visual acuity reduced [Recovering/Resolving]
  - Corneal deposits [Recovered/Resolved]
